FAERS Safety Report 14354029 (Version 1)
Quarter: 2018Q1

REPORT INFORMATION
  Report Type: Spontaneous
  Country: US (occurrence: US)
  Receive Date: 20180105
  Receipt Date: 20180105
  Transmission Date: 20180509
  Serious: No
  Sender: FDA-Public Use
  Company Number: US-UNICHEM PHARMACEUTICALS (USA) INC-UCM201710-000250

PATIENT
  Sex: Female

DRUGS (1)
  1. MELOXICAM 15 MG TABLET [Suspect]
     Active Substance: MELOXICAM

REACTIONS (1)
  - Vision blurred [Unknown]
